FAERS Safety Report 6823628-8 (Version None)
Quarter: 2010Q3

REPORT INFORMATION
  Report Type: 
  Country: None (occurrence: None)
  Receive Date: 20100708
  Receipt Date: 20060809
  Transmission Date: 20110219
  Serious: No
  Sender: FDA-Public Use
  Company Number: US-PFIZER INC-2006098667

PATIENT
  Sex: Female
  Weight: 53.52 kg

DRUGS (1)
  1. CHANTIX [Suspect]
     Indication: SMOKING CESSATION THERAPY
     Dosage: DAILY
     Route: 065
     Dates: start: 20060807

REACTIONS (1)
  - UNEVALUABLE EVENT [None]
